FAERS Safety Report 23341723 (Version 1)
Quarter: 2023Q4

REPORT INFORMATION
  Report Type: Spontaneous
  Country: US (occurrence: US)
  Receive Date: 20231227
  Receipt Date: 20231227
  Transmission Date: 20240110
  Serious: No
  Sender: FDA-Public Use
  Company Number: US-BAYER-2023A183055

PATIENT

DRUGS (1)
  1. CLARITIN REDITABS [Suspect]
     Active Substance: LORATADINE

REACTIONS (1)
  - Wrong technique in product usage process [Not Recovered/Not Resolved]
